FAERS Safety Report 7535169-3 (Version None)
Quarter: 2011Q2

REPORT INFORMATION
  Report Type: 
  Country: None (occurrence: None)
  Receive Date: 20110609
  Receipt Date: 20090220
  Transmission Date: 20111010
  Serious: Yes (Hospitalization)
  Sender: FDA-Public Use
  Company Number: PHHY2009JP00891

PATIENT
  Sex: Female
  Weight: 44 kg

DRUGS (9)
  1. ETODOLAC [Concomitant]
     Dosage: 400 MG, UNK
     Route: 048
     Dates: start: 20080807
  2. LANTELOL(CARTEOLOL HYDROCHLORIDE) [Concomitant]
     Indication: HYPERTENSION
     Dosage: 10 MG, UNK
     Route: 048
     Dates: start: 20011120
  3. APLACE [Concomitant]
     Dosage: 200 MG, UNK
     Route: 048
     Dates: start: 19940506
  4. OLMESARTAN MEDOXOMIL [Concomitant]
     Indication: HYPERTENSION
     Dosage: 20 MG, UNK
     Route: 048
     Dates: start: 20070602, end: 20071128
  5. TRICHLORMETHIAZIDE [Concomitant]
     Indication: HYPERTENSION
     Dosage: 1 MG, UNK
     Route: 048
     Dates: start: 19990706
  6. VALSARTAN [Suspect]
     Dosage: 80 MG/DAY
     Route: 048
     Dates: start: 20080807
  7. SAYMOTIN [Concomitant]
     Indication: HYPERTENSION
     Dosage: 50 IU, UNK
     Route: 048
     Dates: start: 20070602, end: 20071128
  8. LOXONIN [Concomitant]
     Dosage: 120 MG, UNK
     Route: 048
     Dates: start: 20050510, end: 20080806
  9. VALSARTAN [Suspect]
     Indication: HYPERTENSION
     Dosage: 40 MG, QD
     Route: 048
     Dates: start: 20071129, end: 20080806

REACTIONS (2)
  - BRAIN CONTUSION [None]
  - SUBDURAL HAEMATOMA [None]
